FAERS Safety Report 7138503-1 (Version None)
Quarter: 2010Q4

REPORT INFORMATION
  Report Type: 
  Country: None (occurrence: None)
  Receive Date: 20101202
  Receipt Date: 20101202
  Transmission Date: 20110411
  Serious: Yes (Other)
  Sender: FDA-Public Use
  Company Number: None

PATIENT
  Sex: Female
  Weight: 70.3075 kg

DRUGS (5)
  1. CLONIDINE [Suspect]
     Indication: HYPERTENSION
     Dosage: CLONIDINE 0.3MG/__  OF WEEK TRANSDERMAL
     Route: 062
     Dates: start: 20100920, end: 20101020
  2. CLONIDINE [Suspect]
     Indication: HYPERTENSIVE CARDIOMYOPATHY
     Dosage: CLONIDINE 0.3MG/__  OF WEEK TRANSDERMAL
     Route: 062
     Dates: start: 20100920, end: 20101020
  3. MULTIPLE ORAL DRUGS [Concomitant]
  4. LIDOCAINE PATCHES [Concomitant]
     Indication: HYPERTENSION
     Dosage: 0.3MG/__ TRANSDERMAL
     Dates: start: 20100901, end: 20101020
  5. LIDOCAINE PATCHES [Concomitant]
     Indication: HYPERTENSIVE CARDIOMYOPATHY
     Dosage: 0.3MG/__ TRANSDERMAL
     Dates: start: 20100901, end: 20101020

REACTIONS (5)
  - BLOOD PRESSURE INADEQUATELY CONTROLLED [None]
  - DISCOMFORT [None]
  - ERYTHEMA [None]
  - PRODUCT SUBSTITUTION ISSUE [None]
  - SKIN IRRITATION [None]
